FAERS Safety Report 17236599 (Version 1)
Quarter: 2019Q4

REPORT INFORMATION
  Report Type: Spontaneous
  Country: US (occurrence: US)
  Receive Date: 20191211
  Receipt Date: 20191211
  Transmission Date: 20200122
  Serious: No
  Sender: FDA-Public Use
  Company Number: None

PATIENT
  Age: 31 Year
  Sex: Female

DRUGS (1)
  1. ICATIBANT [Suspect]
     Active Substance: ICATIBANT ACETATE
     Dosage: ?          OTHER FREQUENCY:PRN;?
     Route: 058
     Dates: start: 2018

REACTIONS (1)
  - Angioedema [None]

NARRATIVE: CASE EVENT DATE: 20191211
